FAERS Safety Report 24253485 (Version 1)
Quarter: 2024Q3

REPORT INFORMATION
  Report Type: Spontaneous
  Country: ES (occurrence: ES)
  Receive Date: 20240827
  Receipt Date: 20240827
  Transmission Date: 20241016
  Serious: Yes (Hospitalization, Other)
  Sender: PFIZER
  Company Number: None

PATIENT
  Age: 73 Year
  Sex: Female

DRUGS (4)
  1. ENCORAFENIB [Suspect]
     Active Substance: ENCORAFENIB
     Indication: Malignant melanoma stage IV
     Dosage: 450 MG
     Route: 048
     Dates: start: 20240605
  2. BINIMETINIB [Suspect]
     Active Substance: BINIMETINIB
     Indication: Malignant melanoma stage IV
     Dosage: 45 MG, BID (2/DAY)
     Route: 048
     Dates: start: 20240605
  3. IPILIMUMAB [Suspect]
     Active Substance: IPILIMUMAB
     Indication: Malignant melanoma stage IV
     Dosage: 190 MG, CYCLICAL(1/21)
     Route: 042
     Dates: start: 20240425, end: 20240516
  4. NIVOLUMAB [Suspect]
     Active Substance: NIVOLUMAB
     Indication: Malignant melanoma stage IV
     Dosage: 64 MG, CYCLICAL(1/21)
     Route: 042
     Dates: start: 20240425, end: 20240516

REACTIONS (3)
  - Immune-mediated hypophysitis [Recovered/Resolved]
  - Immune-mediated thyroiditis [Recovered/Resolved]
  - Immune-mediated hepatitis [Recovering/Resolving]

NARRATIVE: CASE EVENT DATE: 20240616
